FAERS Safety Report 10293227 (Version 2)
Quarter: 2014Q3

REPORT INFORMATION
  Report Type: Spontaneous
  Country: US (occurrence: US)
  Receive Date: 20140710
  Receipt Date: 20140710
  Transmission Date: 20150326
  Serious: No
  Sender: FDA-Public Use
  Company Number: US-PURDUE-USA-2013-0108006

PATIENT
  Sex: Male
  Weight: 73.92 kg

DRUGS (5)
  1. BUTRANS [Suspect]
     Active Substance: BUPRENORPHINE
     Indication: BACK PAIN
     Dosage: 5 MCG/HR, WEEKLY
     Route: 062
  2. BUTRANS [Suspect]
     Active Substance: BUPRENORPHINE
     Indication: ANXIETY
     Dosage: 10 MCG/HR, WEEKLY
     Route: 062
     Dates: start: 20130319
  3. AMBIEN [Concomitant]
     Active Substance: ZOLPIDEM TARTRATE
     Indication: PRODUCT USED FOR UNKNOWN INDICATION
     Dosage: UNK, HS
     Route: 048
  4. TRAMADOL (SIMILAR TO NDA 21-745) [Concomitant]
     Active Substance: TRAMADOL
     Indication: PAIN
     Dosage: 50 MG, TID
     Route: 048
  5. HYDROCODONE [Concomitant]
     Active Substance: HYDROCODONE
     Indication: PRODUCT USED FOR UNKNOWN INDICATION
     Dosage: MORNING AND NIGHT
     Route: 048

REACTIONS (10)
  - Peripheral coldness [None]
  - Pallor [Recovered/Resolved]
  - Drug effect decreased [Unknown]
  - Fatigue [Unknown]
  - Personality change [Unknown]
  - Feeling hot [Unknown]
  - Cold sweat [Unknown]
  - General physical health deterioration [Unknown]
  - Dizziness [Recovered/Resolved]
  - Malaise [Recovered/Resolved]
